FAERS Safety Report 8126067-5 (Version None)
Quarter: 2012Q1

REPORT INFORMATION
  Report Type: 
  Country: None (occurrence: None)
  Receive Date: 20120209
  Receipt Date: 20120127
  Transmission Date: 20120608
  Serious: Yes (Other)
  Sender: FDA-Public Use
  Company Number: PHHO2010US03555

PATIENT
  Sex: Male
  Weight: 119.8 kg

DRUGS (7)
  1. LOVAZA [Concomitant]
     Dosage: UNK
     Dates: start: 20101108, end: 20110301
  2. LISINOPRIL [Concomitant]
  3. LOVAZA [Concomitant]
     Dosage: UNK
     Dates: start: 20070401, end: 20081231
  4. GILENYA [Suspect]
     Indication: RELAPSING-REMITTING MULTIPLE SCLEROSIS
     Dosage: 0.5MG
     Route: 048
     Dates: start: 20080804, end: 20110118
  5. WARFARIN SODIUM [Concomitant]
     Dosage: 5 MG, UNK
     Dates: start: 20100414
  6. AMLODIPINE BESYLATE [Concomitant]
     Dosage: UNK
     Dates: start: 20090217, end: 20100723
  7. WARFARIN SODIUM [Concomitant]
     Dosage: 10 MG, UNK
     Dates: end: 20100529

REACTIONS (5)
  - PALLOR [None]
  - IMMUNOSUPPRESSION [None]
  - ATRIAL FIBRILLATION [None]
  - ARRHYTHMIA [None]
  - HEART RATE INCREASED [None]
